FAERS Safety Report 25436084 (Version 1)
Quarter: 2025Q2

REPORT INFORMATION
  Report Type: Spontaneous
  Country: TW (occurrence: TW)
  Receive Date: 20250614
  Receipt Date: 20250614
  Transmission Date: 20250716
  Serious: Yes (Hospitalization, Other)
  Sender: BRISTOL-MYERS SQUIBB COMPANY
  Company Number: TW-BRISTOL-MYERS SQUIBB COMPANY-2025-079893

PATIENT
  Age: 74 Year
  Sex: Male
  Weight: 70 kg

DRUGS (16)
  1. SPRYCEL [Interacting]
     Active Substance: DASATINIB
     Indication: Philadelphia positive acute lymphocytic leukaemia
     Route: 048
     Dates: start: 20250416, end: 20250418
  2. SPRYCEL [Interacting]
     Active Substance: DASATINIB
     Route: 048
     Dates: start: 20250418
  3. VFEND [Interacting]
     Active Substance: VORICONAZOLE
     Indication: Systemic mycosis
     Route: 048
     Dates: start: 20250506, end: 20250515
  4. VFEND [Interacting]
     Active Substance: VORICONAZOLE
     Route: 041
     Dates: start: 20250515, end: 20250518
  5. VINCRISTINE [Suspect]
     Active Substance: VINCRISTINE
     Indication: Philadelphia positive acute lymphocytic leukaemia
     Dates: start: 20250416
  6. VINCRISTINE [Suspect]
     Active Substance: VINCRISTINE
     Dates: start: 20250421
  7. VINCRISTINE [Suspect]
     Active Substance: VINCRISTINE
     Dates: start: 20250429
  8. PREDNISOLONE [Suspect]
     Active Substance: PREDNISOLONE
     Indication: Philadelphia positive acute lymphocytic leukaemia
     Dates: start: 20250421, end: 20250423
  9. PREDNISOLONE [Suspect]
     Active Substance: PREDNISOLONE
     Dates: start: 20250424, end: 20250427
  10. ANXIEDIN [Concomitant]
     Indication: Sleep disorder therapy
     Route: 048
  11. RIVOTRIL [Concomitant]
     Active Substance: CLONAZEPAM
     Indication: Sleep disorder therapy
     Route: 048
  12. DAPSONE [Concomitant]
     Active Substance: DAPSONE
     Indication: Pneumocystis jirovecii pneumonia
     Route: 048
  13. VEMLIDY [Concomitant]
     Active Substance: TENOFOVIR ALAFENAMIDE FUMARATE
     Indication: Infection prophylaxis
     Route: 048
  14. VALTREX [Concomitant]
     Active Substance: VALACYCLOVIR HYDROCHLORIDE
     Indication: Infection prophylaxis
     Route: 048
  15. VALTREX [Concomitant]
     Active Substance: VALACYCLOVIR HYDROCHLORIDE
     Route: 048
  16. VALTREX [Concomitant]
     Active Substance: VALACYCLOVIR HYDROCHLORIDE
     Route: 048

REACTIONS (9)
  - Fluid retention [Unknown]
  - Off label use [Unknown]
  - Oedema peripheral [Unknown]
  - Drug interaction [Unknown]
  - Pulmonary oedema [Recovering/Resolving]
  - Pneumocystis jirovecii pneumonia [Unknown]
  - Blood pressure increased [Unknown]
  - Weight increased [Unknown]
  - Dyspnoea [Recovering/Resolving]

NARRATIVE: CASE EVENT DATE: 20250506
